FAERS Safety Report 15005837 (Version 1)
Quarter: 2018Q2

REPORT INFORMATION
  Report Type: Spontaneous
  Country: JP (occurrence: JP)
  Receive Date: 20180613
  Receipt Date: 20180613
  Transmission Date: 20180711
  Serious: Yes (Hospitalization, Other)
  Sender: FDA-Public Use
  Company Number: JP-ELI_LILLY_AND_COMPANY-JP201806003610

PATIENT
  Age: 71 Year
  Sex: Male

DRUGS (4)
  1. ERBITUX [Suspect]
     Active Substance: CETUXIMAB
     Indication: OROPHARYNGEAL CANCER
     Dosage: UNK, UNKNOWN
     Route: 041
  2. CISPLATIN. [Concomitant]
     Active Substance: CISPLATIN
     Indication: OESOPHAGEAL CARCINOMA
     Dosage: UNK
  3. TS-1 [Concomitant]
     Active Substance: GIMERACIL\OTERACIL\TEGAFUR
     Indication: OROPHARYNGEAL CANCER
  4. CISPLATIN. [Concomitant]
     Active Substance: CISPLATIN
     Indication: OROPHARYNGEAL CANCER

REACTIONS (2)
  - Emphysema [Recovering/Resolving]
  - Interstitial lung disease [Recovering/Resolving]
